FAERS Safety Report 6335786-2 (Version None)
Quarter: 2009Q3

REPORT INFORMATION
  Report Type: 
  Country: None (occurrence: None)
  Receive Date: 20090831
  Receipt Date: 20090824
  Transmission Date: 20100115
  Serious: Yes (Death)
  Sender: FDA-Public Use
  Company Number: US-GILEAD-2009-0023371

PATIENT
  Sex: Male
  Weight: 141.65 kg

DRUGS (13)
  1. LETAIRIS [Suspect]
     Indication: PULMONARY ARTERIAL HYPERTENSION
     Route: 048
     Dates: start: 20090204
  2. COUMADIN [Concomitant]
  3. LASIX [Concomitant]
  4. SPIRONOLACTONE [Concomitant]
  5. METOLAZONE [Concomitant]
  6. PREDNISONE [Concomitant]
  7. BUSPAR [Concomitant]
  8. ALLOPURINOL [Concomitant]
  9. COLCHICINE [Concomitant]
  10. HYDROXYCHLOROQUINE SULFATE [Concomitant]
  11. ATIVAN [Concomitant]
  12. PROZAC [Concomitant]
  13. POTASSIUM CHLORIDE [Concomitant]

REACTIONS (1)
  - RENAL FAILURE [None]
